FAERS Safety Report 7574533-3 (Version None)
Quarter: 2011Q2

REPORT INFORMATION
  Report Type: 
  Country: None (occurrence: None)
  Receive Date: 20110627
  Receipt Date: 20110526
  Transmission Date: 20111010
  Serious: No
  Sender: FDA-Public Use
  Company Number: US-BAYER-2011-050691

PATIENT
  Age: 5 Year
  Sex: Female
  Weight: 27 kg

DRUGS (1)
  1. ALEVE (CAPLET) [Suspect]
     Indication: ACCIDENTAL DRUG INTAKE BY CHILD
     Dosage: 660 MG, ONCE
     Route: 048
     Dates: start: 20110526, end: 20110526

REACTIONS (1)
  - NO ADVERSE EVENT [None]
